FAERS Safety Report 14519891 (Version 3)
Quarter: 2018Q2

REPORT INFORMATION
  Report Type: Spontaneous
  Country: US (occurrence: US)
  Receive Date: 20180212
  Receipt Date: 20180425
  Transmission Date: 20180711
  Serious: No
  Sender: FDA-Public Use
  Company Number: US-PFIZER INC-2018061016

PATIENT
  Age: 12 Year
  Sex: Male
  Weight: 40 kg

DRUGS (3)
  1. GENOTROPIN [Suspect]
     Active Substance: SOMATROPIN
     Dosage: 1.2 MG, DAILY
     Route: 058
     Dates: start: 20180207
  2. GENOTROPIN [Suspect]
     Active Substance: SOMATROPIN
     Dosage: 1.2 MG, 1X/DAY (ONCE PER DAY, 7 DAYS A WEEK)
     Route: 058
  3. GENOTROPIN [Suspect]
     Active Substance: SOMATROPIN
     Indication: GROWTH HORMONE DEFICIENCY
     Dosage: 1.2 MG, 1X/DAY
     Route: 058
     Dates: start: 20180205

REACTIONS (3)
  - Injection site extravasation [Unknown]
  - Wrong technique in device usage process [Unknown]
  - Injection site rash [Unknown]

NARRATIVE: CASE EVENT DATE: 20180205
